FAERS Safety Report 5227623-4 (Version None)
Quarter: 2007Q1

REPORT INFORMATION
  Report Type: 
  Country: None (occurrence: None)
  Receive Date: 20061201
  Receipt Date: 20061017
  Transmission Date: 20070707
  Serious: No
  Sender: FDA-Public Use
  Company Number: US200610003117

PATIENT
  Age: 35 Year
  Sex: Male

DRUGS (2)
  1. CYMBALTA [Suspect]
     Indication: OBSESSIVE-COMPULSIVE DISORDER
     Dosage: 60 MG, ORAL
     Route: 048
     Dates: start: 20060401, end: 20060801
  2. ZOLOFT [Concomitant]

REACTIONS (2)
  - DRUG WITHDRAWAL SYNDROME [None]
  - SEXUAL DYSFUNCTION [None]
